FAERS Safety Report 19440960 (Version 2)
Quarter: 2022Q1

REPORT INFORMATION
  Report Type: Spontaneous
  Country: JP (occurrence: JP)
  Receive Date: 20210621
  Receipt Date: 20220119
  Transmission Date: 20220423
  Serious: Yes (Other)
  Sender: FDA-Public Use
  Company Number: JP-NOVARTISPH-NVSJ2020JP007577

PATIENT
  Age: 89 Year
  Sex: Male

DRUGS (2)
  1. BEOVU [Suspect]
     Active Substance: BROLUCIZUMAB-DBLL
     Indication: Age-related macular degeneration
     Dosage: 6 MG
     Route: 031
     Dates: start: 20200605, end: 20200605
  2. BEOVU [Suspect]
     Active Substance: BROLUCIZUMAB-DBLL
     Indication: Polypoidal choroidal vasculopathy
     Dosage: 6 MG
     Route: 031
     Dates: start: 20200703, end: 20200703

REACTIONS (7)
  - Retinal vasculitis [Recovered/Resolved with Sequelae]
  - Retinal perivascular sheathing [Unknown]
  - Retinal artery occlusion [Recovering/Resolving]
  - Vitritis [Unknown]
  - Retinal exudates [Unknown]
  - Symptom recurrence [Unknown]
  - Eye inflammation [Recovering/Resolving]

NARRATIVE: CASE EVENT DATE: 20200731
